FAERS Safety Report 11259606 (Version 3)
Quarter: 2015Q3

REPORT INFORMATION
  Report Type: Report from Study
  Country: US (occurrence: US)
  Receive Date: 20150710
  Receipt Date: 20150812
  Transmission Date: 20151125
  Serious: Yes (Hospitalization)
  Sender: FDA-Public Use
  Company Number: US-PFIZER INC-2015222734

PATIENT
  Age: 55 Year
  Sex: Female

DRUGS (7)
  1. FLUOROURACIL. [Suspect]
     Active Substance: FLUOROURACIL
     Indication: COLORECTAL CANCER METASTATIC
     Dosage: 3200 MG/M2, ONCE IN 2 WEEKS
     Route: 042
     Dates: start: 20141229
  2. LEUCOVORIN. [Suspect]
     Active Substance: LEUCOVORIN
     Indication: COLORECTAL CANCER METASTATIC
     Dosage: 200 MG/M2, CYCLIC, (ONCE IN 2 WEEKS)
     Route: 042
     Dates: start: 20141229
  3. REMERON [Concomitant]
     Active Substance: MIRTAZAPINE
     Dosage: UNK
     Dates: start: 20150309, end: 20150405
  4. BEVACIZUMAB [Suspect]
     Active Substance: BEVACIZUMAB
     Indication: COLORECTAL CANCER METASTATIC
     Dosage: 5 MG/KG, CYCLIC, (ONCE IN 2 WEEKS)
     Route: 042
     Dates: start: 20141229, end: 20150211
  5. OXALIPLATIN. [Suspect]
     Active Substance: OXALIPLATIN
     Indication: COLORECTAL CANCER METASTATIC
     Dosage: 85 MG/M2, CYCLIC, (ONCE IN 2 WEEKS)
     Route: 042
     Dates: start: 20141229
  6. IRINOTECAN HCL [Suspect]
     Active Substance: IRINOTECAN HYDROCHLORIDE
     Indication: COLORECTAL CANCER METASTATIC
     Dosage: 165 MG/M2, CYCLIC, (ONCE IN 2 WEEKS)
     Route: 042
     Dates: start: 20141229
  7. LEVOFLOXACIN. [Concomitant]
     Active Substance: LEVOFLOXACIN
     Dosage: UNK
     Dates: start: 20150311, end: 20150408

REACTIONS (4)
  - Dehydration [Recovered/Resolved]
  - Fatigue [Recovered/Resolved]
  - Hypertension [Recovered/Resolved]
  - Failure to thrive [Recovered/Resolved]

NARRATIVE: CASE EVENT DATE: 20150223
